FAERS Safety Report 23494171 (Version 4)
Quarter: 2025Q1

REPORT INFORMATION
  Report Type: Spontaneous
  Country: US (occurrence: US)
  Receive Date: 20240207
  Receipt Date: 20250108
  Transmission Date: 20250409
  Serious: Yes (Other)
  Sender: PFIZER
  Company Number: US-PFIZER INC-PV202400017577

PATIENT
  Age: 66 Year
  Sex: Male

DRUGS (6)
  1. LITFULO [Suspect]
     Active Substance: RITLECITINIB TOSYLATE
     Indication: Alopecia
  2. ATORVASTATIN [Concomitant]
     Active Substance: ATORVASTATIN
  3. DYMISTA [Concomitant]
     Active Substance: AZELASTINE HYDROCHLORIDE\FLUTICASONE PROPIONATE
  4. RYBELSUS [Concomitant]
     Active Substance: SEMAGLUTIDE
  5. VICODIN [Concomitant]
     Active Substance: ACETAMINOPHEN\HYDROCODONE BITARTRATE
  6. VITAMIN D NOS [Concomitant]
     Active Substance: CHOLECALCIFEROL\ERGOCALCIFEROL

REACTIONS (7)
  - Spinal operation [Unknown]
  - Precancerous skin lesion [Unknown]
  - Diabetes mellitus [Unknown]
  - Fall [Unknown]
  - Upper limb fracture [Unknown]
  - Neoplasm malignant [Unknown]
  - Back disorder [Unknown]
